FAERS Safety Report 10076526 (Version 1)
Quarter: 2014Q2

REPORT INFORMATION
  Report Type: Spontaneous
  Country: US (occurrence: US)
  Receive Date: 20140414
  Receipt Date: 20140414
  Transmission Date: 20141212
  Serious: No
  Sender: FDA-Public Use
  Company Number: US-BAYER-2014-049597

PATIENT
  Age: 80 Year
  Sex: Male

DRUGS (7)
  1. ALEVE CAPLET [Suspect]
     Dosage: 2 DF, BID
     Route: 048
     Dates: start: 201403
  2. BAYER ASPIRIN REGIMEN ADULT LOW STRENGTH [Concomitant]
  3. CENTRUM SILVER [Concomitant]
  4. VITAMIN E [Concomitant]
  5. FISH OIL [Concomitant]
  6. LEVOXYL [Concomitant]
  7. GARLIC [Concomitant]

REACTIONS (3)
  - Intentional product misuse [None]
  - Incorrect drug administration duration [None]
  - Extra dose administered [None]
